FAERS Safety Report 4785578-0 (Version None)
Quarter: 2005Q4

REPORT INFORMATION
  Report Type: 
  Country: None (occurrence: None)
  Receive Date: 20051003
  Receipt Date: 20050814
  Transmission Date: 20060501
  Serious: Yes (Other)
  Sender: FDA-Public Use
  Company Number: AU-GLAXOSMITHKLINE-B0391026A

PATIENT
  Age: 38 Year
  Sex: Female

DRUGS (1)
  1. ZYBAN [Suspect]
     Route: 048
     Dates: start: 20050806, end: 20050809

REACTIONS (5)
  - AGGRESSION [None]
  - BALANCE DISORDER [None]
  - FATIGUE [None]
  - HOT FLUSH [None]
  - SOMNOLENCE [None]
